FAERS Safety Report 11272023 (Version 1)
Quarter: 2015Q3

REPORT INFORMATION
  Report Type: Spontaneous
  Country: US (occurrence: None)
  Receive Date: 20150713
  Receipt Date: 20150713
  Transmission Date: 20151125
  Serious: No
  Sender: FDA-Public Use
  Company Number: None

PATIENT
  Age: 56 Year
  Sex: Female

DRUGS (1)
  1. RIBAVIRIN. [Suspect]
     Active Substance: RIBAVIRIN
     Indication: HEPATITIS C
     Dosage: 2 TABS AM 3 PM BID ORAL
     Route: 048
     Dates: start: 20150617

REACTIONS (8)
  - Dry mouth [None]
  - Oedema [None]
  - Stomatitis [None]
  - Fungal infection [None]
  - Rash [None]
  - Peripheral swelling [None]
  - Infectious mononucleosis [None]
  - Dry throat [None]

NARRATIVE: CASE EVENT DATE: 20150630
